FAERS Safety Report 25531205 (Version 1)
Quarter: 2025Q3

REPORT INFORMATION
  Report Type: Spontaneous
  Country: US (occurrence: US)
  Receive Date: 20250708
  Receipt Date: 20250708
  Transmission Date: 20251020
  Serious: No
  Sender: CALLIDITAS THERAPEUTICS AB
  Company Number: US-Calliditas-2025CAL01862

PATIENT
  Age: 51 Year
  Sex: Female

DRUGS (9)
  1. TARPEYO [Suspect]
     Active Substance: BUDESONIDE
     Indication: IgA nephropathy
     Route: 048
     Dates: start: 20250606
  2. CLONIDINE [Concomitant]
     Active Substance: CLONIDINE
  3. LASIX [Concomitant]
     Active Substance: FUROSEMIDE
  4. PREDNISONE [Concomitant]
     Active Substance: PREDNISONE
  5. HYDRALAZINE [Concomitant]
     Active Substance: HYDRALAZINE HYDROCHLORIDE
  6. FARXIGA [Concomitant]
     Active Substance: DAPAGLIFLOZIN PROPANEDIOL
  7. VALSARTAN [Concomitant]
     Active Substance: VALSARTAN
  8. TESTOSTERONE [Concomitant]
     Active Substance: TESTOSTERONE
  9. PROGESTERONE [Concomitant]
     Active Substance: PROGESTERONE

REACTIONS (1)
  - Taste disorder [Not Recovered/Not Resolved]
